FAERS Safety Report 5892666-4 (Version None)
Quarter: 2008Q3

REPORT INFORMATION
  Report Type: 
  Country: None (occurrence: None)
  Receive Date: 20080923
  Receipt Date: 20080916
  Transmission Date: 20090109
  Serious: Yes (Other)
  Sender: FDA-Public Use
  Company Number: PHEH2008US06813

PATIENT
  Sex: Female
  Weight: 44.898 kg

DRUGS (5)
  1. TEKTURNA [Suspect]
     Dosage: 300 UNK, QD
     Route: 048
     Dates: start: 20070828, end: 20080513
  2. LEXXEL [Suspect]
     Dosage: ENAL5/FELO5, BID
     Route: 048
     Dates: start: 20070226
  3. LEXXEL [Suspect]
     Dosage: ENAL5/FELO5, QD
     Route: 048
  4. ZOCOR [Concomitant]
     Dosage: 40 MG, QD
     Route: 048
     Dates: start: 20070226
  5. TOPROL-XL [Concomitant]
     Dosage: 50 MG, QD
     Route: 048
     Dates: start: 20070516

REACTIONS (3)
  - BLOOD SODIUM DECREASED [None]
  - HYPONATRAEMIA [None]
  - SYNCOPE [None]
